FAERS Safety Report 7377320-4 (Version None)
Quarter: 2011Q1

REPORT INFORMATION
  Report Type: 
  Country: None (occurrence: None)
  Receive Date: 20110328
  Receipt Date: 20110316
  Transmission Date: 20110831
  Serious: Yes (Other)
  Sender: FDA-Public Use
  Company Number: US-JNJFOC-20110307874

PATIENT
  Sex: Male
  Weight: 127.01 kg

DRUGS (5)
  1. DESMOPRESSIN ACETATE [Concomitant]
     Indication: ENURESIS
     Route: 048
  2. RISPERDAL CONSTA [Suspect]
     Indication: SCHIZOAFFECTIVE DISORDER
     Route: 030
  3. RISPERDAL [Suspect]
     Indication: SCHIZOAFFECTIVE DISORDER
     Route: 048
  4. VALPROIC ACID [Concomitant]
     Indication: SCHIZOAFFECTIVE DISORDER
     Route: 048
  5. LITHIUM [Concomitant]
     Indication: SCHIZOAFFECTIVE DISORDER
     Route: 048

REACTIONS (4)
  - INJECTION SITE HAEMORRHAGE [None]
  - NONSPECIFIC REACTION [None]
  - THERMAL BURN [None]
  - INJECTION SITE PAIN [None]
